FAERS Safety Report 16454344 (Version 1)
Quarter: 2019Q2

REPORT INFORMATION
  Report Type: Spontaneous
  Country: CN (occurrence: CN)
  Receive Date: 20190619
  Receipt Date: 20190619
  Transmission Date: 20190711
  Serious: Yes (Other)
  Sender: FDA-Public Use
  Company Number: PHHY2019CN114233

PATIENT
  Age: 35 Year
  Sex: Male

DRUGS (1)
  1. GLIVEC [Suspect]
     Active Substance: IMATINIB MESYLATE
     Indication: CHRONIC MYELOID LEUKAEMIA
     Dosage: 400 MG, QD
     Route: 048
     Dates: start: 20091117, end: 20120428

REACTIONS (4)
  - Renal injury [Recovered/Resolved]
  - Drug resistance [Unknown]
  - Skin haemorrhage [Recovered/Resolved]
  - Oedema [Recovered/Resolved]
